FAERS Safety Report 12282119 (Version 8)
Quarter: 2022Q1

REPORT INFORMATION
  Report Type: Spontaneous
  Country: US (occurrence: US)
  Receive Date: 20160419
  Receipt Date: 20220203
  Transmission Date: 20220423
  Serious: Yes (Hospitalization)
  Sender: FDA-Public Use
  Company Number: US-PFIZER INC-2016184690

PATIENT
  Age: 68 Year
  Sex: Female
  Weight: 73.94 kg

DRUGS (4)
  1. PREMPRO [Suspect]
     Active Substance: ESTROGENS, CONJUGATED\MEDROXYPROGESTERONE ACETATE
     Indication: Hot flush
     Dosage: UNK, 1X/DAY (0.625MG/ 2.5MG)
     Dates: start: 1996
  2. PREMPRO [Suspect]
     Active Substance: ESTROGENS, CONJUGATED\MEDROXYPROGESTERONE ACETATE
     Dosage: UNK, 1X/DAY (0.625MG/ 2.5MG)
  3. PREMPRO [Suspect]
     Active Substance: ESTROGENS, CONJUGATED\MEDROXYPROGESTERONE ACETATE
     Dosage: 1 DF, DAILY (0.625 MG-2.5 MG)
     Route: 048
  4. PREMPRO [Suspect]
     Active Substance: ESTROGENS, CONJUGATED\MEDROXYPROGESTERONE ACETATE
     Dosage: 1 DF, DAILY [ESTROGENS CONJUGATED: 0.625MG; MEDROXYPROGESTERONE ACETATE: 2.5MG]
     Route: 048

REACTIONS (2)
  - Insomnia [Recovered/Resolved]
  - Product prescribing error [Unknown]
